FAERS Safety Report 19378372 (Version 3)
Quarter: 2022Q4

REPORT INFORMATION
  Report Type: Report from Study
  Country: US (occurrence: US)
  Receive Date: 20210605
  Receipt Date: 20221028
  Transmission Date: 20230112
  Serious: Yes (Hospitalization, Other)
  Sender: FDA-Public Use
  Company Number: US-TAKEDA-2021TUS034925

PATIENT
  Age: 17 Year
  Sex: Male

DRUGS (2)
  1. PROTEIN C [Suspect]
     Active Substance: PROTEIN C
     Indication: Product used for unknown indication
     Dosage: 1000 INTERNATIONAL UNIT
     Route: 042
  2. PROTEIN C [Suspect]
     Active Substance: PROTEIN C
     Dosage: 2000 INTERNATIONAL UNIT
     Route: 065

REACTIONS (3)
  - Bacteraemia [Recovered/Resolved]
  - Device related sepsis [Unknown]
  - Pneumonia influenzal [Unknown]

NARRATIVE: CASE EVENT DATE: 20210524
